FAERS Safety Report 9592355 (Version 1)
Quarter: 2013Q3

REPORT INFORMATION
  Report Type: Spontaneous
  Country: US (occurrence: None)
  Receive Date: 20130930
  Receipt Date: 20130930
  Transmission Date: 20140515
  Serious: Yes (Other)
  Sender: FDA-Public Use
  Company Number: 1000047144

PATIENT
  Age: 64 Year
  Sex: Female

DRUGS (3)
  1. LINZESS (LINACLOTIDE) (145 MICROGRAM, CAPSULES) [Suspect]
     Indication: IRRITABLE BOWEL SYNDROME
     Dosage: 145MCG (145MCG 1 IN 1)
     Dates: start: 20130722, end: 20130723
  2. LINZESS (LINACLOTIDE) (145 MICROGRAM, CAPSULES) [Suspect]
     Indication: CONSTIPATION
     Dosage: 145MCG (145MCG 1 IN 1)
     Dates: start: 20130722, end: 20130723
  3. LISINOPRIL (LISINOPRIL) (LISINOPRIL) [Concomitant]

REACTIONS (1)
  - Drug ineffective [None]
